FAERS Safety Report 5710332-2 (Version None)
Quarter: 2008Q2

REPORT INFORMATION
  Report Type: 
  Country: None (occurrence: None)
  Receive Date: 20080418
  Receipt Date: 20080408
  Transmission Date: 20081010
  Serious: Yes (Other)
  Sender: FDA-Public Use
  Company Number: US-PFIZER INC-2008031430

PATIENT
  Sex: Female
  Weight: 72.727 kg

DRUGS (8)
  1. NEURONTIN [Suspect]
     Indication: POST HERPETIC NEURALGIA
  2. LYRICA [Suspect]
     Indication: POST HERPETIC NEURALGIA
  3. CYMBALTA [Concomitant]
  4. TRAMADOL HCL [Concomitant]
  5. ELAVIL [Concomitant]
  6. LIDOCAINE [Concomitant]
  7. PROVIGIL [Concomitant]
  8. IMITREX [Concomitant]

REACTIONS (5)
  - DRUG INEFFECTIVE [None]
  - HERPES ZOSTER [None]
  - INFLAMMATION [None]
  - TRAUMATIC BRAIN INJURY [None]
  - VISION BLURRED [None]
